FAERS Safety Report 25189570 (Version 2)
Quarter: 2025Q2

REPORT INFORMATION
  Report Type: Spontaneous
  Country: DE (occurrence: DE)
  Receive Date: 20250411
  Receipt Date: 20250419
  Transmission Date: 20250717
  Serious: Yes (Death, Hospitalization, Other)
  Sender: AUROBINDO
  Company Number: DE-002147023-NVSC2024DE220704

PATIENT
  Sex: Female

DRUGS (4)
  1. LETROZOLE [Suspect]
     Active Substance: LETROZOLE
     Indication: Hormone receptor positive HER2 negative breast cancer
     Dosage: 2.5 MILLIGRAM, ONCE A DAY [2.5 MG, QD]
     Route: 048
     Dates: start: 20200218, end: 20240728
  2. KISQALI [Suspect]
     Active Substance: RIBOCICLIB SUCCINATE
     Indication: Hormone receptor positive HER2 negative breast cancer
     Route: 048
     Dates: start: 20200218, end: 20200420
  3. KISQALI [Suspect]
     Active Substance: RIBOCICLIB SUCCINATE
     Route: 048
     Dates: start: 20200421, end: 20240701
  4. KISQALI [Suspect]
     Active Substance: RIBOCICLIB SUCCINATE
     Route: 048
     Dates: start: 20240702, end: 20240731

REACTIONS (5)
  - Multiple organ dysfunction syndrome [Fatal]
  - Microangiopathic haemolytic anaemia [Fatal]
  - Febrile nonhaemolytic transfusion reaction [Recovered/Resolved]
  - Haemoglobin decreased [Unknown]
  - Anaemia [Recovering/Resolving]

NARRATIVE: CASE EVENT DATE: 20240624
